FAERS Safety Report 10779478 (Version 2)
Quarter: 2015Q1

REPORT INFORMATION
  Report Type: Spontaneous
  Country: US (occurrence: US)
  Receive Date: 20150210
  Receipt Date: 20150210
  Transmission Date: 20150721
  Serious: No
  Sender: FDA-Public Use
  Company Number: US-GLAXOSMITHKLINE-A0814855A

PATIENT

DRUGS (2)
  1. VERAMYST [Suspect]
     Active Substance: FLUTICASONE FUROATE
     Indication: PRODUCT USED FOR UNKNOWN INDICATION
     Dosage: 27.5 MCG
     Route: 045
     Dates: start: 20090709
  2. VENTOLIN [Suspect]
     Active Substance: ALBUTEROL SULFATE
     Indication: PRODUCT USED FOR UNKNOWN INDICATION
     Dosage: 90 MCG
     Route: 065
     Dates: start: 20110913

REACTIONS (3)
  - Drug administration error [Unknown]
  - Prescribed overdose [Unknown]
  - Emergency care examination [Unknown]
